FAERS Safety Report 9491187 (Version 2)
Quarter: 2013Q4

REPORT INFORMATION
  Report Type: Not Available
  Country: US (occurrence: US)
  Receive Date: 20120619
  Receipt Date: 20131016
  Transmission Date: 20140711
  Serious: Yes (Hospitalization)
  Sender: FDA-Public Use
  Company Number: US-LUNDBECK-DKLU1077296

PATIENT
  Age: 3 Year
  Sex: Female

DRUGS (5)
  1. SABRIL (TABLET) [Suspect]
     Indication: COMPLEX PARTIAL SEIZURES
     Route: 048
     Dates: start: 20120117, end: 20130122
  2. DIAZEPAM [Concomitant]
     Indication: CONVULSION
  3. TRILEPTAL [Concomitant]
     Indication: CONVULSION
  4. DILANTIN [Concomitant]
     Indication: CONVULSION
  5. ZONEGRAN [Concomitant]
     Indication: CONVULSION

REACTIONS (3)
  - Status epilepticus [Recovering/Resolving]
  - Convulsion [Recovering/Resolving]
  - Drug ineffective [Recovering/Resolving]
